FAERS Safety Report 23857902 (Version 3)
Quarter: 2024Q3

REPORT INFORMATION
  Report Type: Report from Study
  Country: CA (occurrence: CA)
  Receive Date: 20240515
  Receipt Date: 20240711
  Transmission Date: 20241016
  Serious: Yes (Other)
  Sender: JOHNSON AND JOHNSON
  Company Number: CA-JNJFOC-20240519201

PATIENT
  Age: 35 Year
  Sex: Female

DRUGS (2)
  1. SIMPONI [Suspect]
     Active Substance: GOLIMUMAB
     Indication: Juvenile idiopathic arthritis
     Route: 058
     Dates: start: 20230815
  2. SIMPONI [Suspect]
     Active Substance: GOLIMUMAB
     Route: 058

REACTIONS (2)
  - Juvenile idiopathic arthritis [Unknown]
  - Viral infection [Unknown]
